FAERS Safety Report 18161360 (Version 3)
Quarter: 2021Q2

REPORT INFORMATION
  Report Type: Spontaneous
  Country: JP (occurrence: JP)
  Receive Date: 20200818
  Receipt Date: 20210428
  Transmission Date: 20210717
  Serious: Yes (Congenital Anomaly)
  Sender: FDA-Public Use
  Company Number: NVSJ2020JP007856

PATIENT
  Age: 6 Month
  Sex: Male

DRUGS (2)
  1. AFINITOR DISPERZ [Suspect]
     Active Substance: EVEROLIMUS
     Indication: RHABDOMYOMA
     Dosage: 1 MG
     Route: 048
     Dates: start: 20200616
  2. SODIUM VALPROATE [Concomitant]
     Active Substance: VALPROATE SODIUM
     Indication: PRODUCT USED FOR UNKNOWN INDICATION
     Dosage: 6 MG
     Route: 048
     Dates: start: 20200702

REACTIONS (3)
  - Infantile spasms [Recovering/Resolving]
  - Product use issue [Unknown]
  - Stomatitis [Recovered/Resolved]

NARRATIVE: CASE EVENT DATE: 20200702
